FAERS Safety Report 6638430-X (Version None)
Quarter: 2010Q1

REPORT INFORMATION
  Report Type: 
  Country: None (occurrence: None)
  Receive Date: 20100316
  Receipt Date: 20100316
  Transmission Date: 20100710
  Serious: Yes (Death, Hospitalization)
  Sender: FDA-Public Use
  Company Number: None

PATIENT
  Age: 49 Year
  Sex: Male
  Weight: 81 kg

DRUGS (1)
  1. MYLOTARG [Suspect]
     Indication: REFRACTORY ANAEMIA
     Dosage: 16 MG DAILY ORAL 047
     Route: 048

REACTIONS (5)
  - ASCITES [None]
  - HEPATORENAL SYNDROME [None]
  - MULTI-ORGAN FAILURE [None]
  - STEM CELL TRANSPLANT [None]
  - UNRESPONSIVE TO STIMULI [None]
